FAERS Safety Report 20544269 (Version 1)
Quarter: 2022Q1

REPORT INFORMATION
  Report Type: Report from Study
  Country: US (occurrence: US)
  Receive Date: 20220303
  Receipt Date: 20220303
  Transmission Date: 20220423
  Serious: Yes (Hospitalization)
  Sender: FDA-Public Use
  Company Number: US-ABBVIE-22K-163-4298810-00

PATIENT
  Sex: Male

DRUGS (1)
  1. IMBRUVICA [Suspect]
     Active Substance: IBRUTINIB
     Indication: Chronic lymphocytic leukaemia
     Dosage: DOSE: 420 (UNIT NOT REPORTED)
     Route: 048
     Dates: start: 20190920

REACTIONS (5)
  - Feeding disorder [Unknown]
  - Renal function test abnormal [Unknown]
  - Vomiting [Unknown]
  - Dehydration [Unknown]
  - Constipation [Unknown]
